FAERS Safety Report 23278211 (Version 1)
Quarter: 2023Q4

REPORT INFORMATION
  Report Type: Spontaneous
  Country: US (occurrence: None)
  Receive Date: 20231208
  Receipt Date: 20231208
  Transmission Date: 20240110
  Serious: Yes (Hospitalization)
  Sender: FDA-Public Use
  Company Number: None

PATIENT
  Sex: Female

DRUGS (1)
  1. HUMIRA [Suspect]
     Active Substance: ADALIMUMAB
     Indication: Polyarthritis
     Dosage: 40MG EVERY 14 DAYS SQ?
     Route: 058
     Dates: start: 202111

REACTIONS (3)
  - Cerebrovascular accident [None]
  - Central nervous system lesion [None]
  - Drug ineffective [None]
